FAERS Safety Report 7296811-8 (Version None)
Quarter: 2011Q1

REPORT INFORMATION
  Report Type: 
  Country: None (occurrence: None)
  Receive Date: 20110216
  Receipt Date: 20110207
  Transmission Date: 20110831
  Serious: Yes (Other)
  Sender: FDA-Public Use
  Company Number: CA-MERCK-1102USA00797

PATIENT
  Age: 59 Year
  Sex: Female
  Weight: 73 kg

DRUGS (9)
  1. DIAMICRON [Concomitant]
     Route: 048
  2. ZETIA [Suspect]
     Route: 065
  3. SYNTHROID [Concomitant]
     Route: 065
  4. FOSAMAX [Concomitant]
     Route: 048
  5. GLUCONORM (GLYBURIDE) [Concomitant]
     Route: 048
  6. ALTACE HCT [Concomitant]
     Route: 065
  7. CALCIUM (UNSPECIFIED) [Concomitant]
     Route: 065
  8. LANTUS [Concomitant]
     Route: 058
  9. ASPIRIN [Concomitant]
     Route: 065

REACTIONS (5)
  - ARTHRALGIA [None]
  - MYALGIA [None]
  - RASH [None]
  - ALOPECIA [None]
  - BLOOD GLUCOSE INCREASED [None]
